FAERS Safety Report 6370081-7 (Version None)
Quarter: 2009Q3

REPORT INFORMATION
  Report Type: 
  Country: None (occurrence: None)
  Receive Date: 20090923
  Receipt Date: 20070530
  Transmission Date: 20100115
  Serious: Yes (Disabling)
  Sender: FDA-Public Use
  Company Number: US-ASTRAZENECA-2006UW21744

PATIENT
  Age: 36 Year
  Sex: Female
  Weight: 82.8 kg

DRUGS (17)
  1. SEROQUEL [Suspect]
     Indication: SCHIZOPHRENIA
     Route: 048
     Dates: start: 20040503
  2. SEROQUEL [Suspect]
     Indication: DEPRESSION
     Route: 048
     Dates: start: 20040503
  3. SEROQUEL [Suspect]
     Indication: ANXIETY
     Route: 048
     Dates: start: 20040503
  4. SEROQUEL [Suspect]
     Route: 048
     Dates: start: 20040702
  5. SEROQUEL [Suspect]
     Route: 048
     Dates: start: 20040702
  6. SEROQUEL [Suspect]
     Route: 048
     Dates: start: 20040702
  7. SEROQUEL [Suspect]
     Dosage: 200 MG TO 500 MG
     Route: 048
     Dates: start: 20040619
  8. SEROQUEL [Suspect]
     Dosage: 200 MG TO 500 MG
     Route: 048
     Dates: start: 20040619
  9. SEROQUEL [Suspect]
     Dosage: 200 MG TO 500 MG
     Route: 048
     Dates: start: 20040619
  10. ABILIFY [Concomitant]
     Dates: start: 20040101
  11. GEODON [Concomitant]
     Dates: start: 20050720
  12. HALDOL [Concomitant]
  13. CLONAZEPAM [Concomitant]
     Route: 048
     Dates: start: 20000928
  14. CLONAZEPAM [Concomitant]
     Dosage: HALF PILL TWICE/DAY, 0.5 MG TWO TIMES A DAY
     Dates: start: 20060924
  15. ZYPREXA [Concomitant]
     Dates: start: 20000928
  16. ZYPREXA [Concomitant]
     Dosage: TOTAL DAILY DOSE 5 MG
     Dates: start: 20040120
  17. ORTHO-NOVUM [Concomitant]
     Dosage: STRENGTH 7/7/7
     Dates: start: 20000912

REACTIONS (3)
  - DIABETES MELLITUS [None]
  - TARDIVE DYSKINESIA [None]
  - TYPE 1 DIABETES MELLITUS [None]
